FAERS Safety Report 8115361-X (Version None)
Quarter: 2012Q1

REPORT INFORMATION
  Report Type: 
  Country: None (occurrence: None)
  Receive Date: 20120206
  Receipt Date: 20120206
  Transmission Date: 20120608
  Serious: Yes (Other)
  Sender: FDA-Public Use
  Company Number: None

PATIENT
  Age: 43 Year
  Sex: Male
  Weight: 86.182 kg

DRUGS (2)
  1. CYMBALTA [Suspect]
     Indication: DEPRESSION
     Dosage: ONE TABLET
     Route: 048
     Dates: start: 20110802, end: 20120130
  2. CYMBALTA [Suspect]
     Indication: BACK PAIN
     Dosage: ONE TABLET
     Route: 048
     Dates: start: 20110802, end: 20120130

REACTIONS (6)
  - FEELING ABNORMAL [None]
  - MOOD SWINGS [None]
  - DIZZINESS [None]
  - NIGHTMARE [None]
  - WITHDRAWAL SYNDROME [None]
  - PARAESTHESIA [None]
